FAERS Safety Report 4698184-3 (Version None)
Quarter: 2005Q2

REPORT INFORMATION
  Report Type: 
  Country: None (occurrence: None)
  Receive Date: 20050623
  Receipt Date: 20050620
  Transmission Date: 20051028
  Serious: Yes (Death, Other)
  Sender: FDA-Public Use
  Company Number: PHRM2005FR01891

PATIENT
  Age: 18 Year
  Sex: Male

DRUGS (3)
  1. SANDIMMUNE [Suspect]
     Indication: BONE MARROW TRANSPLANT
     Route: 042
     Dates: start: 20030827, end: 20030827
  2. ENDOXAN [Suspect]
     Indication: BONE MARROW TRANSPLANT
     Dosage: TOTAL DOSAG E: 70 MG
     Route: 042
     Dates: start: 20030830, end: 20030904
  3. LEDERTREXATE [Suspect]
     Indication: BONE MARROW TRANSPLANT
     Dosage: TOTAL DOSAGE : 70 MG
     Route: 042
     Dates: start: 20030830, end: 20030904

REACTIONS (6)
  - BONE MARROW DEPRESSION [None]
  - BRAIN OEDEMA [None]
  - CEREBRAL HAEMATOMA [None]
  - CEREBRAL HAEMORRHAGE [None]
  - EPILEPSY [None]
  - RENAL FAILURE [None]
